FAERS Safety Report 8048613-2 (Version None)
Quarter: 2012Q1

REPORT INFORMATION
  Report Type: 
  Country: None (occurrence: None)
  Receive Date: 20120117
  Receipt Date: 20120113
  Transmission Date: 20120608
  Serious: Yes (Other)
  Sender: FDA-Public Use
  Company Number: US-PFIZER INC-2012011021

PATIENT
  Sex: Female
  Weight: 72.56 kg

DRUGS (2)
  1. LIPITOR [Suspect]
     Indication: BLOOD CHOLESTEROL INCREASED
     Dosage: UNK, DAILY
     Route: 048
     Dates: start: 19980101
  2. RAMIPRIL [Concomitant]
     Indication: HYPERTENSION
     Dosage: 120MG TWO TIMES A DAY

REACTIONS (1)
  - WHITE BLOOD CELL COUNT DECREASED [None]
